FAERS Safety Report 14325265 (Version 1)
Quarter: 2017Q4

REPORT INFORMATION
  Report Type: Spontaneous
  Country: US (occurrence: US)
  Receive Date: 20171224
  Receipt Date: 20171224
  Transmission Date: 20180321
  Serious: Yes (Disabling)
  Sender: FDA-Public Use
  Company Number: None

PATIENT
  Age: 65 Year
  Sex: Male
  Weight: 92.7 kg

DRUGS (7)
  1. LISINOPRIL. [Concomitant]
     Active Substance: LISINOPRIL
  2. PLAVIX [Concomitant]
     Active Substance: CLOPIDOGREL BISULFATE
  3. ASPIRIN. [Concomitant]
     Active Substance: ASPIRIN
  4. OMEPRAZOLE. [Concomitant]
     Active Substance: OMEPRAZOLE
  5. CARVEDILOL. [Concomitant]
     Active Substance: CARVEDILOL
  6. MUCINEX D [Concomitant]
     Active Substance: GUAIFENESIN\PSEUDOEPHEDRINE HYDROCHLORIDE
  7. LEVAQUIN [Suspect]
     Active Substance: LEVOFLOXACIN
     Indication: BRONCHITIS
     Dosage: ?          QUANTITY:10 TABLET(S);?
     Route: 048
     Dates: start: 20171005, end: 20171010

REACTIONS (9)
  - Tendon disorder [None]
  - Muscle haemorrhage [None]
  - Impaired work ability [None]
  - Balance disorder [None]
  - Rotator cuff syndrome [None]
  - Gait disturbance [None]
  - Tendon rupture [None]
  - Muscle spasms [None]
  - Fall [None]

NARRATIVE: CASE EVENT DATE: 20171008
